FAERS Safety Report 5994309-8 (Version None)
Quarter: 2008Q4

REPORT INFORMATION
  Report Type: 
  Country: None (occurrence: None)
  Receive Date: 20081209
  Receipt Date: 20080902
  Transmission Date: 20090506
  Serious: No
  Sender: FDA-Public Use
  Company Number: 002#8#2008-00661

PATIENT
  Age: 72 Year
  Sex: Male

DRUGS (2)
  1. ROTIGOTINE(DOSE UNKNOWN), UNKNOWN (ROTIGOTINE) [Suspect]
     Indication: PARKINSON'S DISEASE
  2. LEVODOPA [Concomitant]

REACTIONS (3)
  - GAMBLING [None]
  - HYPERSEXUALITY [None]
  - STEREOTYPY [None]
